FAERS Safety Report 9441793 (Version 1)
Quarter: 2013Q3

REPORT INFORMATION
  Report Type: Spontaneous
  Country: US (occurrence: US)
  Receive Date: 20130806
  Receipt Date: 20130806
  Transmission Date: 20140515
  Serious: No
  Sender: FDA-Public Use
  Company Number: US-PFIZER INC-2013226625

PATIENT
  Age: 71 Year
  Sex: Male
  Weight: 62.13 kg

DRUGS (3)
  1. LIPITOR [Suspect]
     Indication: BLOOD CHOLESTEROL
     Dosage: UNK
  2. TIKOSYN [Suspect]
     Indication: ATRIAL FIBRILLATION
     Dosage: 500 UG, 2X/DAY
     Route: 048
     Dates: start: 20130326
  3. PLAVIX [Concomitant]
     Dosage: UNK

REACTIONS (2)
  - Arthralgia [Recovered/Resolved]
  - Pain in extremity [Unknown]
